FAERS Safety Report 16468603 (Version 2)
Quarter: 2019Q3

REPORT INFORMATION
  Report Type: Report from Study
  Country: None (occurrence: BR)
  Receive Date: 20190624
  Receipt Date: 20190703
  Transmission Date: 20191004
  Serious: Yes (Other)
  Sender: FDA-Public Use
  Company Number: BR-ABBVIE-18K-020-2400814-00

PATIENT
  Sex: Female
  Weight: 105 kg

DRUGS (3)
  1. XARELTO [Concomitant]
     Active Substance: RIVAROXABAN
     Indication: PRODUCT USED FOR UNKNOWN INDICATION
  2. HUMIRA [Suspect]
     Active Substance: ADALIMUMAB
     Indication: PSORIATIC ARTHROPATHY
     Route: 058
     Dates: start: 20110102, end: 201904
  3. MAREVAN [Suspect]
     Active Substance: WARFARIN SODIUM
     Indication: PRODUCT USED FOR UNKNOWN INDICATION
     Route: 065

REACTIONS (11)
  - Dizziness [Unknown]
  - Uterine leiomyoma [Unknown]
  - Cervical cyst [Unknown]
  - Peripheral swelling [Unknown]
  - Uterine haemorrhage [Recovering/Resolving]
  - Pulmonary embolism [Unknown]
  - Thrombosis [Recovered/Resolved]
  - Syncope [Unknown]
  - Thrombosis [Unknown]
  - Osteoarthritis [Unknown]
  - Arthropathy [Unknown]

NARRATIVE: CASE EVENT DATE: 2016
